FAERS Safety Report 11167823 (Version 1)
Quarter: 2015Q2

REPORT INFORMATION
  Report Type: Spontaneous
  Country: US (occurrence: US)
  Receive Date: 20150605
  Receipt Date: 20150605
  Transmission Date: 20150821
  Serious: No
  Sender: FDA-Public Use
  Company Number: US-PFIZER INC-2015183873

PATIENT
  Age: 57 Year
  Sex: Male
  Weight: 59 kg

DRUGS (1)
  1. TRIAZOLAM. [Suspect]
     Active Substance: TRIAZOLAM
     Indication: DENTAL CARE
     Dosage: 25 MG, 2X/DAY
     Dates: start: 20150528

REACTIONS (4)
  - Fatigue [Unknown]
  - Somnolence [Unknown]
  - Erythema [Unknown]
  - Product use issue [Unknown]
